FAERS Safety Report 7359537-8 (Version None)
Quarter: 2011Q1

REPORT INFORMATION
  Report Type: 
  Country: None (occurrence: None)
  Receive Date: 20110310
  Receipt Date: 20110225
  Transmission Date: 20110831
  Serious: Yes (Other)
  Sender: FDA-Public Use
  Company Number: 2011MA001927

PATIENT
  Age: 77 Year
  Sex: Female

DRUGS (12)
  1. METFORMIN HYDROCHLORIDE [Suspect]
     Dates: start: 20110215
  2. BUDESONIDE [Concomitant]
  3. DICLOFENAC [Concomitant]
  4. MICONAZOLE [Concomitant]
  5. FENOFIBRATE [Concomitant]
  6. BENDROFLUMETHIAZIDE [Concomitant]
  7. ISPAGHULA HUSK [Concomitant]
  8. SALMETEROL [Concomitant]
  9. CLOMIPRAMINE [Concomitant]
  10. SALBUTAMOL [Concomitant]
  11. HORMONE REPLACEMENT THERAPY [Concomitant]
  12. GLICLAZIDE [Concomitant]

REACTIONS (4)
  - LIVER FUNCTION TEST ABNORMAL [None]
  - EAR DISORDER [None]
  - EXOSTOSIS [None]
  - CERUMEN IMPACTION [None]
